FAERS Safety Report 5307071-9 (Version None)
Quarter: 2007Q2

REPORT INFORMATION
  Report Type: 
  Country: None (occurrence: None)
  Receive Date: 20070425
  Receipt Date: 20070414
  Transmission Date: 20071010
  Serious: Yes (Hospitalization)
  Sender: FDA-Public Use
  Company Number: PHEH2007US05376

PATIENT
  Sex: Female

DRUGS (1)
  1. ZELNORM [Suspect]
     Route: 065

REACTIONS (3)
  - ASTHENIA [None]
  - DIZZINESS [None]
  - GAIT DISTURBANCE [None]
